FAERS Safety Report 4418082-X (Version None)
Quarter: 2004Q3

REPORT INFORMATION
  Report Type: 
  Country: None (occurrence: None)
  Receive Date: 20040803
  Receipt Date: 20040722
  Transmission Date: 20050211
  Serious: Yes (Life-Threatening)
  Sender: FDA-Public Use
  Company Number: T03-USA-03976-01

PATIENT
  Age: 0 Day
  Sex: Male
  Weight: 1.04 kg

DRUGS (5)
  1. INFASURF (UNBLINDED THERAPY) [Suspect]
     Indication: ACUTE RESPIRATORY DISTRESS SYNDROME
     Dosage: 4 BID TRACH
     Dates: start: 20030920, end: 20030921
  2. DOPAMINE HCL [Concomitant]
  3. AMPICILLIN [Concomitant]
  4. GENTAMYCIN SULFATE [Concomitant]
  5. INDOMETHACIN 25MG CAP [Concomitant]

REACTIONS (4)
  - METABOLIC ACIDOSIS [None]
  - NEONATAL DISORDER [None]
  - PATENT DUCTUS ARTERIOSUS [None]
  - PNEUMOTHORAX [None]
